FAERS Safety Report 16009332 (Version 1)
Quarter: 2019Q1

REPORT INFORMATION
  Report Type: Report from Study
  Country: None (occurrence: RO)
  Receive Date: 20190226
  Receipt Date: 20190226
  Transmission Date: 20190418
  Serious: Yes (Hospitalization, Other)
  Sender: FDA-Public Use
  Company Number: RO-ABBVIE-18S-135-2584006-00

PATIENT
  Age: 72 Year
  Sex: Female

DRUGS (27)
  1. VIEKIRAX [Suspect]
     Active Substance: OMBITASVIR\PARITAPREVIR\RITONAVIR
     Indication: HEPATITIS C
     Route: 048
     Dates: start: 20181123, end: 20190107
  2. EXVIERA [Suspect]
     Active Substance: DASABUVIR
     Indication: HEPATITIS C
     Route: 048
     Dates: start: 20181123, end: 20190107
  3. EXVIERA [Suspect]
     Active Substance: DASABUVIR
     Indication: HEPATIC CIRRHOSIS
  4. HEPAMERZ [Concomitant]
     Active Substance: ORNITHINE ASPARTATE
     Indication: LIVER DISORDER
     Dosage: 1 ENVELOPE/DAY
     Route: 048
     Dates: start: 20190107
  5. FLUCONAZOL [Concomitant]
     Active Substance: FLUCONAZOLE
     Route: 048
  6. TRAMADOL. [Concomitant]
     Active Substance: TRAMADOL
     Indication: PRODUCT USED FOR UNKNOWN INDICATION
     Dosage: 1-2TABLETS/DAY
     Route: 048
     Dates: start: 20190107
  7. PRESTARIUM [Concomitant]
     Active Substance: PERINDOPRIL
     Indication: HYPERTENSION
     Route: 048
  8. MEDROL [Concomitant]
     Active Substance: METHYLPREDNISOLONE
     Indication: NEPHROPATHY
     Route: 048
     Dates: end: 20181210
  9. LANTUS [Concomitant]
     Active Substance: INSULIN GLARGINE
     Indication: DIABETES MELLITUS
     Dosage: 12-16 UI
     Route: 051
  10. SPIRONOLACTONE. [Concomitant]
     Active Substance: SPIRONOLACTONE
     Indication: HYPERTENSION
     Route: 048
  11. GLYPRESSIN [Concomitant]
     Active Substance: TERLIPRESSIN
     Indication: PRODUCT USED FOR UNKNOWN INDICATION
     Route: 048
     Dates: end: 20181210
  12. VIEKIRAX [Suspect]
     Active Substance: OMBITASVIR\PARITAPREVIR\RITONAVIR
     Indication: HEPATIC CIRRHOSIS
  13. METOPROLOL. [Concomitant]
     Active Substance: METOPROLOL
     Indication: HYPERTENSION
     Route: 048
  14. TAZOCIN [Concomitant]
     Active Substance: PIPERACILLIN SODIUM\TAZOBACTAM SODIUM
     Indication: PRODUCT USED FOR UNKNOWN INDICATION
     Route: 048
  15. ALPHA D3 [Concomitant]
     Active Substance: ALFACALCIDOL
     Indication: PRODUCT USED FOR UNKNOWN INDICATION
     Route: 048
  16. TOLVAPTAN [Concomitant]
     Active Substance: TOLVAPTAN
     Indication: CHRONIC KIDNEY DISEASE
     Route: 048
     Dates: start: 20181205
  17. FUROSEMID [Concomitant]
     Active Substance: FUROSEMIDE
     Indication: HYPERTENSION
     Route: 048
     Dates: start: 20190107
  18. CONTROLOC [Concomitant]
     Active Substance: PANTOPRAZOLE SODIUM
     Indication: DUODENAL ULCER
     Route: 048
     Dates: start: 20190107
  19. URSOFALK [Concomitant]
     Active Substance: URSODIOL
     Indication: LIVER DISORDER
     Route: 048
     Dates: start: 20190107
  20. BISEPTOL [Concomitant]
     Active Substance: SULFAMETHOXAZOLE\TRIMETHOPRIM
     Indication: PRODUCT USED FOR UNKNOWN INDICATION
     Route: 048
     Dates: start: 20190107
  21. LACTULOSE. [Concomitant]
     Active Substance: LACTULOSE
     Indication: PRODUCT USED FOR UNKNOWN INDICATION
     Dosage: 1-3 MEASURES/DAY
     Route: 048
     Dates: start: 20190107
  22. RENEOS [Concomitant]
     Indication: DIABETES MELLITUS
     Route: 048
  23. TENAXUM [Concomitant]
     Active Substance: RILMENIDINE
     Indication: HYPERTENSION
     Route: 048
  24. CEFTAMIL [Concomitant]
     Active Substance: CEFTAZIDIME
     Indication: PRODUCT USED FOR UNKNOWN INDICATION
     Route: 048
  25. FLUCONAZOL [Concomitant]
     Active Substance: FLUCONAZOLE
     Indication: PYELONEPHRITIS ACUTE
     Route: 048
  26. MELATONINE ISOTEC [Concomitant]
     Indication: PROPHYLAXIS
     Route: 048
     Dates: start: 20190107
  27. NORMIX [Concomitant]
     Active Substance: RIFAXIMIN
     Indication: PRODUCT USED FOR UNKNOWN INDICATION
     Route: 048
     Dates: start: 20190107

REACTIONS (17)
  - General physical health deterioration [Recovered/Resolved]
  - Oxygen saturation decreased [Recovered/Resolved]
  - Confusional state [Unknown]
  - Transaminases increased [Recovered/Resolved]
  - Laboratory test abnormal [Unknown]
  - Hypernatraemia [Unknown]
  - Feeding disorder [Not Recovered/Not Resolved]
  - Cerebral atrophy [Not Recovered/Not Resolved]
  - Vomiting [Recovered/Resolved]
  - General physical health deterioration [Unknown]
  - Hyperkalaemia [Recovered/Resolved]
  - Blood bilirubin increased [Unknown]
  - Hypotension [Recovered/Resolved]
  - Decubitus ulcer [Not Recovered/Not Resolved]
  - Dysgeusia [Not Recovered/Not Resolved]
  - Pyelonephritis acute [Unknown]
  - Blood albumin abnormal [Recovered/Resolved]

NARRATIVE: CASE EVENT DATE: 2018
